FAERS Safety Report 23167915 (Version 1)
Quarter: 2023Q4

REPORT INFORMATION
  Report Type: Spontaneous
  Country: CA (occurrence: CA)
  Receive Date: 20231109
  Receipt Date: 20231109
  Transmission Date: 20240110
  Serious: Yes (Hospitalization)
  Sender: FDA-Public Use
  Company Number: CA-PFIZER INC-202300356555

PATIENT
  Age: 76 Year
  Sex: Female

DRUGS (1)
  1. SUCCINYLCHOLINE CHLORIDE [Suspect]
     Active Substance: SUCCINYLCHOLINE CHLORIDE
     Dosage: UNK
     Route: 065

REACTIONS (7)
  - Depressed level of consciousness [Unknown]
  - Hypertension [Unknown]
  - Hypotonia [Unknown]
  - Muscle spasms [Unknown]
  - Respiratory arrest [Unknown]
  - Seizure [Unknown]
  - Tachycardia [Unknown]
